FAERS Safety Report 7020715-9 (Version None)
Quarter: 2010Q3

REPORT INFORMATION
  Report Type: 
  Country: None (occurrence: None)
  Receive Date: 20100929
  Receipt Date: 20100917
  Transmission Date: 20110219
  Serious: Yes (Other)
  Sender: FDA-Public Use
  Company Number: DE-SANOFI-AVENTIS-2010SA056033

PATIENT

DRUGS (1)
  1. MULTAQ [Suspect]
     Indication: ATRIAL FIBRILLATION
     Route: 048
     Dates: start: 20100101

REACTIONS (4)
  - ATRIAL FIBRILLATION [None]
  - ATRIOVENTRICULAR BLOCK SECOND DEGREE [None]
  - ELECTROCARDIOGRAM QT PROLONGED [None]
  - SINUS BRADYCARDIA [None]
